FAERS Safety Report 4531035-6 (Version None)
Quarter: 2004Q4

REPORT INFORMATION
  Report Type: 
  Country: None (occurrence: None)
  Receive Date: 20041215
  Receipt Date: 20041206
  Transmission Date: 20050328
  Serious: Yes (Hospitalization)
  Sender: FDA-Public Use
  Company Number: 2004-07-0360

PATIENT
  Age: 62 Year
  Sex: Female
  Weight: 58 kg

DRUGS (16)
  1. REBETOL [Suspect]
     Indication: HEPATITIS C
     Dosage: 60-400 MG ORAL; 600 MG ORAL; 400 MG ORAL
     Route: 048
     Dates: start: 20040604, end: 20040618
  2. REBETOL [Suspect]
     Indication: HEPATITIS C
     Dosage: 60-400 MG ORAL; 600 MG ORAL; 400 MG ORAL
     Route: 048
     Dates: start: 20040604, end: 20040620
  3. REBETOL [Suspect]
     Indication: HEPATITIS C
     Dosage: 60-400 MG ORAL; 600 MG ORAL; 400 MG ORAL
     Route: 048
     Dates: start: 20040619, end: 20040620
  4. INTRON A [Suspect]
     Indication: HEPATITIS C
     Dosage: 6 MIU QD-TIW INTRAMUSCULAR; 6 MIU QD INTRAMUSCULAR; 6 MIU TIW INTRAMUSCULAR
     Route: 030
     Dates: start: 20040604, end: 20010617
  5. INTRON A [Suspect]
     Indication: HEPATITIS C
     Dosage: 6 MIU QD-TIW INTRAMUSCULAR; 6 MIU QD INTRAMUSCULAR; 6 MIU TIW INTRAMUSCULAR
     Route: 030
     Dates: start: 20040604, end: 20040620
  6. INTRON A [Suspect]
     Indication: HEPATITIS C
     Dosage: 6 MIU QD-TIW INTRAMUSCULAR; 6 MIU QD INTRAMUSCULAR; 6 MIU TIW INTRAMUSCULAR
     Route: 030
     Dates: start: 20040618, end: 20040623
  7. LASIX [Concomitant]
  8. SPIRONOLACTONE [Concomitant]
  9. SELOKEN [Concomitant]
  10. NU-LOTAN (LOSARTAN POTASSIUM) [Concomitant]
  11. WARFARIN SODIUM [Concomitant]
  12. LIPOVAS [Concomitant]
  13. MAGNESIUM OXIDE [Concomitant]
  14. PURSENNID [Concomitant]
  15. LENDORMIN [Concomitant]
  16. VOLTAREN [Concomitant]

REACTIONS (16)
  - ANOREXIA [None]
  - ARTHRALGIA [None]
  - AUTOIMMUNE DISORDER [None]
  - BLOOD CREATINE PHOSPHOKINASE MB INCREASED [None]
  - C-REACTIVE PROTEIN INCREASED [None]
  - COMPUTERISED TOMOGRAM THORAX ABNORMAL [None]
  - COUGH [None]
  - CYSTITIS [None]
  - DEHYDRATION [None]
  - EATING DISORDER [None]
  - HAEMOGLOBIN DECREASED [None]
  - MALAISE [None]
  - NAUSEA [None]
  - PYREXIA [None]
  - URINE OUTPUT DECREASED [None]
  - VOMITING [None]
